FAERS Safety Report 19030585 (Version 2)
Quarter: 2021Q3

REPORT INFORMATION
  Report Type: Spontaneous
  Country: JP (occurrence: JP)
  Receive Date: 20210319
  Receipt Date: 20210908
  Transmission Date: 20211014
  Serious: Yes (Other)
  Sender: FDA-Public Use
  Company Number: JP-MYLANLABS-2021M1015482

PATIENT
  Age: 58 Year
  Sex: Female

DRUGS (7)
  1. DOCETAXEL. [Concomitant]
     Active Substance: DOCETAXEL
     Indication: BREAST CANCER METASTATIC
     Dosage: 75 MILLIGRAM/SQ. METER, 4 TIMES EVERY 3 WEEKS; RECEIVED 80% OF THE FULL?DOSE
     Route: 042
  2. DOCETAXEL. [Concomitant]
     Active Substance: DOCETAXEL
     Indication: ADJUVANT THERAPY
  3. TRASTUZUMAB EMTANSINE [Suspect]
     Active Substance: ADO-TRASTUZUMAB EMTANSINE
     Indication: BREAST CANCER RECURRENT
     Dosage: 3.6 MILLIGRAM/KILOGRAM, SCHEDULED FOR 10 CYCLES FOR A PERIOD OF 32 WEEKS
     Route: 065
  4. TRASTUZUMAB. [Concomitant]
     Active Substance: TRASTUZUMAB
     Indication: ADJUVANT THERAPY
     Dosage: 6 MILLIGRAM/KILOGRAM, FOUR TIMES EVERY 3 WEEKS
     Route: 042
  5. EPIRUBICIN [Suspect]
     Active Substance: EPIRUBICIN
     Indication: BREAST CANCER METASTATIC
     Dosage: 100 MILLIGRAM/SQ. METER, FOUR TIMES EVERY 3 WEEKS; RECEIVED 70% OF THE FULL?DOSE
     Route: 042
  6. CYCLOPHOSPHAMIDE. [Suspect]
     Active Substance: CYCLOPHOSPHAMIDE
     Indication: BREAST CANCER METASTATIC
     Dosage: 600 MILLIGRAM/SQ. METER, FOUR TIMES EVERY 3 WEEKS; RECEIVED 70% OF THE FULL?DOSE
     Route: 042
  7. TRASTUZUMAB. [Concomitant]
     Active Substance: TRASTUZUMAB
     Indication: BREAST CANCER METASTATIC
     Dosage: 8 MILLIGRAM/KILOGRAM, LOADING DOSE
     Route: 042

REACTIONS (2)
  - Thrombosis [Unknown]
  - Therapy non-responder [Unknown]
